FAERS Safety Report 25964521 (Version 1)
Quarter: 2025Q4

REPORT INFORMATION
  Report Type: Spontaneous
  Country: BR (occurrence: BR)
  Receive Date: 20251027
  Receipt Date: 20251027
  Transmission Date: 20260117
  Serious: Yes (Other)
  Sender: NOVARTIS
  Company Number: BR-002147023-NVSC2025BR162032

PATIENT

DRUGS (2)
  1. IMATINIB [Suspect]
     Active Substance: IMATINIB
     Indication: Product used for unknown indication
     Dosage: UNK
     Route: 065
  2. DASATINIB [Suspect]
     Active Substance: DASATINIB
     Indication: Product used for unknown indication
     Dosage: UNK
     Route: 065

REACTIONS (12)
  - Inflammatory bowel disease [Unknown]
  - Pericardial effusion [Unknown]
  - Colitis [Unknown]
  - Mitral valve incompetence [Unknown]
  - Treatment failure [Unknown]
  - Diarrhoea [Unknown]
  - Weight decreased [Unknown]
  - Proteinuria [Unknown]
  - Generalised oedema [Unknown]
  - Haemorrhoids [Unknown]
  - Hepatic steatosis [Unknown]
  - Proctitis [Unknown]
